FAERS Safety Report 11540578 (Version 1)
Quarter: 2015Q3

REPORT INFORMATION
  Report Type: Spontaneous
  Country: US (occurrence: US)
  Receive Date: 20150923
  Receipt Date: 20150923
  Transmission Date: 20151125
  Serious: No
  Sender: FDA-Public Use
  Company Number: US-BEH-2015050262

PATIENT
  Sex: Female
  Weight: 72 kg

DRUGS (23)
  1. METOPROLOL TARTRATE. [Concomitant]
     Active Substance: METOPROLOL TARTRATE
  2. B-3 NIACIN [Concomitant]
  3. SYNTHROID [Concomitant]
     Active Substance: LEVOTHYROXINE SODIUM
  4. HEPARIN [Concomitant]
     Active Substance: HEPARIN SODIUM
  5. TRICOR [Concomitant]
     Active Substance: FENOFIBRATE
  6. MOBIC [Concomitant]
     Active Substance: MELOXICAM
  7. SINGULAIR [Concomitant]
     Active Substance: MONTELUKAST SODIUM
  8. RHINOCORT [Concomitant]
     Active Substance: BUDESONIDE
  9. ASTELIN [Concomitant]
     Active Substance: AZELASTINE HYDROCHLORIDE
  10. PRIVIGEN [Suspect]
     Active Substance: HUMAN IMMUNOGLOBULIN G
     Indication: IMMUNOGLOBULINS DECREASED
     Route: 042
  11. PRIVIGEN [Suspect]
     Active Substance: HUMAN IMMUNOGLOBULIN G
     Indication: BLOOD IMMUNOGLOBULIN G DECREASED
     Route: 042
  12. ACTOS [Concomitant]
     Active Substance: PIOGLITAZONE HYDROCHLORIDE
  13. BL CALCIUM [Concomitant]
  14. DIPHENHYDRAMINE. [Concomitant]
     Active Substance: DIPHENHYDRAMINE
  15. EPIPEN [Concomitant]
     Active Substance: EPINEPHRINE
  16. GLUCOSAMINECHONDROITIN [Concomitant]
  17. ACETAMINOPHEN. [Concomitant]
     Active Substance: ACETAMINOPHEN
  18. ATENOLOL. [Concomitant]
     Active Substance: ATENOLOL
  19. NATEGLINIDE. [Concomitant]
     Active Substance: NATEGLINIDE
  20. SODIUM CHLORIDE. [Concomitant]
     Active Substance: SODIUM CHLORIDE
  21. DEXTROAMPHETAMINE. [Concomitant]
     Active Substance: DEXTROAMPHETAMINE SULFATE
  22. CRESTOR [Concomitant]
     Active Substance: ROSUVASTATIN CALCIUM
  23. VITAMIN D [Concomitant]
     Active Substance: CHOLECALCIFEROL

REACTIONS (1)
  - Sinusitis [Unknown]
